FAERS Safety Report 4441525-2 (Version None)
Quarter: 2004Q3

REPORT INFORMATION
  Report Type: 
  Country: None (occurrence: None)
  Receive Date: 20040728
  Receipt Date: 20040301
  Transmission Date: 20050211
  Serious: No
  Sender: FDA-Public Use
  Company Number: US_0403101339

PATIENT
  Age: 8 Year
  Sex: Male
  Weight: 32 kg

DRUGS (1)
  1. STRATTERA [Suspect]
     Dosage: 65 MG DAY
     Dates: start: 20030725, end: 20040202

REACTIONS (3)
  - ABNORMAL BEHAVIOUR [None]
  - DRUG INEFFECTIVE [None]
  - PRESCRIBED OVERDOSE [None]
